FAERS Safety Report 5856205-6 (Version None)
Quarter: 2008Q3

REPORT INFORMATION
  Report Type: 
  Country: None (occurrence: None)
  Receive Date: 20080825
  Receipt Date: 20080820
  Transmission Date: 20090109
  Serious: Yes (Hospitalization)
  Sender: FDA-Public Use
  Company Number: A0744009A

PATIENT
  Age: 43 Year
  Sex: Male
  Weight: 130.5 kg

DRUGS (6)
  1. AVANDIA [Suspect]
     Dosage: 4MG TWICE PER DAY
     Route: 048
     Dates: start: 19980101, end: 20070101
  2. METFORMIN [Concomitant]
     Dates: start: 19990101, end: 19990101
  3. DIABETA [Concomitant]
     Dates: start: 19990101, end: 20080101
  4. LISINOPRIL [Concomitant]
  5. FINASTERIDE [Concomitant]
  6. SIMVASTATIN [Concomitant]

REACTIONS (5)
  - CARDIAC DISORDER [None]
  - FLUID RETENTION [None]
  - HEART RATE IRREGULAR [None]
  - MYOCARDIAL INFARCTION [None]
  - WEIGHT INCREASED [None]
